FAERS Safety Report 6557947-X (Version None)
Quarter: 2010Q1

REPORT INFORMATION
  Report Type: 
  Country: None (occurrence: None)
  Receive Date: 20100129
  Receipt Date: 20100119
  Transmission Date: 20100710
  Serious: Yes (Other)
  Sender: FDA-Public Use
  Company Number: US-BAYER-201011903NA

PATIENT
  Age: 38 Year
  Sex: Female

DRUGS (2)
  1. MIRENA [Suspect]
     Indication: DYSMENORRHOEA
     Dosage: CONTINUOUS
     Route: 015
     Dates: start: 20091001
  2. ATENOLOL [Concomitant]
     Indication: HEART RATE IRREGULAR
     Dosage: UNKNOWN DOSAGE

REACTIONS (1)
  - HEART RATE IRREGULAR [None]
